FAERS Safety Report 9844794 (Version 1)
Quarter: 2014Q1

REPORT INFORMATION
  Report Type: Spontaneous
  Country: AU (occurrence: AU)
  Receive Date: 20140127
  Receipt Date: 20140127
  Transmission Date: 20141002
  Serious: Yes (Hospitalization, Other)
  Sender: FDA-Public Use
  Company Number: AU-SA-2014SA007323

PATIENT
  Sex: Male

DRUGS (2)
  1. INSULIN GLARGINE [Suspect]
     Indication: DIABETES MELLITUS
     Dosage: TOTAL DAILY DOSE APPROXIMATELY 100 UNITS IN INSULIN PUMP OF BASAL BOLUS INSULIN
     Route: 065
  2. INSULIN ASPART [Suspect]
     Indication: DIABETES MELLITUS
     Dosage: TOTAL DAILY DOSE APPROXIMATELY 100 UNITS IN INSULIN PUMP OF BASAL BOLUS INSULIN AT MEALTIME
     Route: 065

REACTIONS (10)
  - Neuralgia [Recovering/Resolving]
  - Generalised oedema [Recovered/Resolved]
  - Weight increased [Unknown]
  - Hypoglycaemia [Unknown]
  - Hepatomegaly [Recovered/Resolved]
  - Alanine aminotransferase increased [Recovered/Resolved]
  - Gamma-glutamyltransferase increased [Recovered/Resolved]
  - Blood aldosterone decreased [Unknown]
  - Pleural effusion [Unknown]
  - Abdominal distension [Unknown]
